FAERS Safety Report 5961252-X (Version None)
Quarter: 2008Q4

REPORT INFORMATION
  Report Type: 
  Country: None (occurrence: None)
  Receive Date: 20081119
  Receipt Date: 20081103
  Transmission Date: 20090506
  Serious: Yes (Other)
  Sender: FDA-Public Use
  Company Number: 08-001813

PATIENT
  Age: 26 Year
  Sex: Male

DRUGS (3)
  1. DORYX [Suspect]
     Dosage: 100 MG, BID, ORAL
     Route: 048
  2. QUININE HYDROCHLORIDE (QUININE HYDROCHLORIDE) [Suspect]
     Dosage: 600 MG, QID, INTRAVENOUS
     Route: 042
  3. MEFLOQUINE [Suspect]
     Dosage: 500 MG, ORAL
     Route: 048

REACTIONS (11)
  - CINCHONISM [None]
  - DEAFNESS [None]
  - DRUG LEVEL INCREASED [None]
  - ERYTHEMA [None]
  - FLUSHING [None]
  - HEADACHE [None]
  - NAUSEA [None]
  - PARASITE BLOOD TEST POSITIVE [None]
  - PYREXIA [None]
  - TINNITUS [None]
  - VOMITING [None]
